FAERS Safety Report 9188909 (Version 1)
Quarter: 2013Q1

REPORT INFORMATION
  Report Type: Spontaneous
  Country: DE (occurrence: DE)
  Receive Date: 20130326
  Receipt Date: 20130326
  Transmission Date: 20140127
  Serious: Yes (Other)
  Sender: FDA-Public Use
  Company Number: DE-OTSUKA-02100-EUR-07-0062

PATIENT
  Age: 70 Year
  Sex: Male

DRUGS (3)
  1. PLETAL [Suspect]
     Indication: PERIPHERAL ARTERIAL OCCLUSIVE DISEASE
     Dosage: 100 MG, UNKNOWN
     Route: 048
  2. METOPROLOL [Concomitant]
     Dosage: UNK UNK, UNKNOWN
     Route: 065
  3. RAMIPRIL [Concomitant]
     Dosage: UNK UNKNOWN, UNK
     Route: 065

REACTIONS (2)
  - Circulatory collapse [Unknown]
  - Infection [Unknown]
